FAERS Safety Report 6095870-8 (Version None)
Quarter: 2009Q1

REPORT INFORMATION
  Report Type: 
  Country: None (occurrence: None)
  Receive Date: 20090227
  Receipt Date: 20080804
  Transmission Date: 20090719
  Serious: No
  Sender: FDA-Public Use
  Company Number: A0735834A

PATIENT
  Age: 47 Year
  Sex: Male
  Weight: 118.6 kg

DRUGS (4)
  1. LAMICTAL [Suspect]
     Indication: BIPOLAR DISORDER
     Dosage: 25MG PER DAY
     Route: 048
     Dates: start: 20080613, end: 20080624
  2. CYMBALTA [Concomitant]
     Indication: DEPRESSION
     Dosage: 60MG AS REQUIRED
     Route: 048
     Dates: start: 20080402
  3. NEURONTIN [Concomitant]
     Indication: PAIN
  4. DICLOFENAC [Concomitant]
     Indication: PAIN

REACTIONS (4)
  - CHEILITIS [None]
  - ILL-DEFINED DISORDER [None]
  - LIP SWELLING [None]
  - RASH ERYTHEMATOUS [None]
